FAERS Safety Report 10892618 (Version 3)
Quarter: 2015Q2

REPORT INFORMATION
  Report Type: Spontaneous
  Country: GB (occurrence: GB)
  Receive Date: 20150306
  Receipt Date: 20150616
  Transmission Date: 20150821
  Serious: Yes (Life-Threatening, Hospitalization, Disabling)
  Sender: FDA-Public Use
  Company Number: GB-JNJFOC-20150302374

PATIENT
  Age: 78 Year
  Sex: Female

DRUGS (8)
  1. ACICLOVIR [Concomitant]
     Active Substance: ACYCLOVIR
  2. ALFACALCIDOL [Concomitant]
     Active Substance: ALFACALCIDOL
  3. OMEPRAZOLE. [Concomitant]
     Active Substance: OMEPRAZOLE
  4. LEVOTHYROXINE [Concomitant]
     Active Substance: LEVOTHYROXINE
  5. TRANEXAMIC ACID. [Concomitant]
     Active Substance: TRANEXAMIC ACID
  6. IBRUTINIB [Suspect]
     Active Substance: IBRUTINIB
     Indication: CHRONIC LYMPHOCYTIC LEUKAEMIA
     Route: 048
     Dates: start: 20140703, end: 20150116
  7. AMITRIPTYLINE [Concomitant]
     Active Substance: AMITRIPTYLINE
  8. AMOXICILLIN. [Concomitant]
     Active Substance: AMOXICILLIN

REACTIONS (8)
  - Epistaxis [Recovered/Resolved]
  - VIIth nerve paralysis [Not Recovered/Not Resolved]
  - Aphasia [Not Recovered/Not Resolved]
  - Brain abscess [Not Recovered/Not Resolved]
  - Mucosal haemorrhage [Recovered/Resolved]
  - Hemiparesis [Not Recovered/Not Resolved]
  - Sepsis [Recovered/Resolved]
  - Pseudomonas infection [Unknown]

NARRATIVE: CASE EVENT DATE: 20150117
